FAERS Safety Report 9492753 (Version 1)
Quarter: 2013Q3

REPORT INFORMATION
  Report Type: Spontaneous
  Country: US (occurrence: US)
  Receive Date: 20130830
  Receipt Date: 20130830
  Transmission Date: 20140515
  Serious: Yes (Hospitalization)
  Sender: FDA-Public Use
  Company Number: US-GLAXOSMITHKLINE-A1039344A

PATIENT
  Age: 78 Year
  Sex: Male

DRUGS (4)
  1. ADVAIR [Suspect]
     Indication: CHRONIC OBSTRUCTIVE PULMONARY DISEASE
     Dosage: 1PUFF PER DAY
     Route: 055
     Dates: start: 2003
  2. SPIRIVA [Concomitant]
  3. OMEPRAZOLE [Concomitant]
  4. ARICEPT [Concomitant]

REACTIONS (9)
  - Pneumonia [Recovering/Resolving]
  - Cataract operation [Unknown]
  - Hair growth abnormal [Unknown]
  - Hypertrichosis [Unknown]
  - Cataract [Unknown]
  - Altered visual depth perception [Unknown]
  - Underdose [Unknown]
  - Medication error [Unknown]
  - Rehabilitation therapy [Unknown]
